FAERS Safety Report 7354028-2 (Version None)
Quarter: 2011Q1

REPORT INFORMATION
  Report Type: 
  Country: None (occurrence: None)
  Receive Date: 20110315
  Receipt Date: 20110308
  Transmission Date: 20110831
  Serious: Yes (Other)
  Sender: FDA-Public Use
  Company Number: US-US-EMD SERONO, INC.-7046861

PATIENT
  Sex: Male

DRUGS (3)
  1. REBIF [Suspect]
     Indication: PRODUCT USED FOR UNKNOWN INDICATION
     Route: 058
     Dates: start: 20100422, end: 20100601
  2. REBIF [Suspect]
     Route: 058
     Dates: start: 20100101, end: 20110101
  3. REBIF [Suspect]
     Route: 058
     Dates: start: 20110101

REACTIONS (5)
  - KNEE ARTHROPLASTY [None]
  - PARAESTHESIA [None]
  - MONOPARESIS [None]
  - FALL [None]
  - HYPOAESTHESIA [None]
